FAERS Safety Report 10143343 (Version 1)
Quarter: 2014Q2

REPORT INFORMATION
  Report Type: Spontaneous
  Country: US (occurrence: None)
  Receive Date: 20140429
  Receipt Date: 20140429
  Transmission Date: 20141212
  Serious: Yes (Hospitalization)
  Sender: FDA-Public Use
  Company Number: None

PATIENT
  Age: 55 Year
  Sex: Male
  Weight: 71.5 kg

DRUGS (2)
  1. WARFARIN [Suspect]
     Indication: DEEP VEIN THROMBOSIS
     Dosage: MG   PO
     Route: 048
     Dates: start: 20140101
  2. CLOPIDOGREL [Suspect]
     Dosage: MG  PO
     Route: 048

REACTIONS (1)
  - Gastrointestinal haemorrhage [None]
